FAERS Safety Report 7369475-2 (Version None)
Quarter: 2011Q1

REPORT INFORMATION
  Report Type: 
  Country: None (occurrence: None)
  Receive Date: 20110323
  Receipt Date: 20110314
  Transmission Date: 20110831
  Serious: Yes (Other)
  Sender: FDA-Public Use
  Company Number: US-AMGEN-USASP2011014156

PATIENT
  Sex: Male

DRUGS (2)
  1. ENBREL [Suspect]
     Dosage: 50 MG, 2 TIMES/WK
     Route: 064
     Dates: start: 20091127, end: 20100401
  2. ENBREL [Suspect]
     Dosage: 50 MG, 2 TIMES/WK
     Route: 064
     Dates: start: 20091127, end: 20100401

REACTIONS (1)
  - PREMATURE BABY [None]
